FAERS Safety Report 12613853 (Version 1)
Quarter: 2016Q3

REPORT INFORMATION
  Report Type: Spontaneous
  Country: US (occurrence: None)
  Receive Date: 20160801
  Receipt Date: 20160801
  Transmission Date: 20161109
  Serious: Yes (Life-Threatening, Disabling, Other)
  Sender: FDA-Public Use
  Company Number: None

PATIENT
  Age: 25 Year
  Sex: Male
  Weight: 68.04 kg

DRUGS (5)
  1. RINITIDINE [Concomitant]
  2. MYLANTA [Concomitant]
     Active Substance: ALUMINUM HYDROXIDE\DIMETHICONE\MAGNESIUM HYDROXIDE
  3. ALKASELTZER [Concomitant]
  4. FINASTERIDE 1 MG TABLET USP, SUB, 1 MG AUROBINDO PHARMA LIMITED HYDERABAD [Suspect]
     Active Substance: FINASTERIDE
     Indication: ALOPECIA
     Dosage: 1 TABLET
     Route: 048
     Dates: start: 20160705, end: 20160710
  5. CHEWABLE NATURAL MULTIVITAMINS [Concomitant]

REACTIONS (4)
  - Decreased appetite [None]
  - Breast mass [None]
  - Breast pain [None]
  - Weight decreased [None]

NARRATIVE: CASE EVENT DATE: 20160705
